FAERS Safety Report 6097270-3 (Version None)
Quarter: 2009Q1

REPORT INFORMATION
  Report Type: 
  Country: None (occurrence: None)
  Receive Date: 20090226
  Receipt Date: 20090226
  Transmission Date: 20090719
  Serious: Yes (Other)
  Sender: FDA-Public Use
  Company Number: None

PATIENT
  Age: 38 Year
  Sex: Female
  Weight: 104.5 kg

DRUGS (2)
  1. LAMICTAL [Suspect]
     Dosage: 25MG BID PO
     Route: 048
     Dates: start: 20081111, end: 20081125
  2. FLUOXETINE [Suspect]
     Dosage: 40MG DAILY PO
     Route: 048
     Dates: start: 20081111, end: 20081125

REACTIONS (8)
  - BLISTER [None]
  - BURNING SENSATION [None]
  - CHILLS [None]
  - PRURITUS GENERALISED [None]
  - PYREXIA [None]
  - RASH [None]
  - SKIN EXFOLIATION [None]
  - VOMITING [None]
